FAERS Safety Report 6209239-6 (Version None)
Quarter: 2009Q2

REPORT INFORMATION
  Report Type: 
  Country: None (occurrence: None)
  Receive Date: 20090529
  Receipt Date: 20090520
  Transmission Date: 20091009
  Serious: Yes (Hospitalization, Other)
  Sender: FDA-Public Use
  Company Number: PHHY2009DE19967

PATIENT
  Age: 72 Year
  Sex: Male
  Weight: 65 kg

DRUGS (12)
  1. SANDIMMUNE [Interacting]
     Indication: HEART TRANSPLANT
     Dosage: 100 MG AND 75 MG
     Route: 048
     Dates: start: 20070901
  2. CELLCEPT [Suspect]
     Indication: HEART TRANSPLANT
     Dosage: 1000 MG/DAY
     Route: 048
     Dates: start: 20070901
  3. OMEP [Interacting]
     Indication: PROPHYLAXIS AGAINST GASTROINTESTINAL ULCER
     Dosage: 40 MG, QD
     Route: 048
     Dates: start: 20070101
  4. ASS ^CT-ARZNEIMITTEL^ [Concomitant]
     Indication: ISCHAEMIC HEART DISEASE PROPHYLAXIS
     Dosage: 50 MG, QD
     Route: 048
     Dates: start: 19970101
  5. ATACAND [Concomitant]
     Indication: HYPERTENSION
     Dosage: 16 MG, QD
     Route: 048
     Dates: start: 19970101
  6. CARVEDILOL [Concomitant]
     Indication: HYPERTENSION
     Dosage: 1.25 MG, BID
     Route: 048
     Dates: start: 20020101
  7. DEKRISTOL [Concomitant]
     Indication: RENAL FAILURE CHRONIC
     Dosage: 20000 IU, QD
     Route: 048
     Dates: start: 20070101
  8. FUROSEMIDE [Concomitant]
     Indication: RENAL FAILURE CHRONIC
     Dosage: 250 MG, BID
     Route: 048
     Dates: start: 20070101
  9. LOCOL [Concomitant]
     Indication: DYSLIPIDAEMIA
     Dosage: 80 MG, QD
     Route: 048
     Dates: start: 19970101
  10. MYDOCALM ^CHOAY LABS.^ [Concomitant]
     Indication: MUSCLE TIGHTNESS
     Dosage: 50 MG, TID
     Route: 048
     Dates: start: 20070101
  11. PALLADONE [Concomitant]
     Indication: MUSCLE TIGHTNESS
     Dosage: 8 MG, QD
     Route: 048
     Dates: start: 20070101
  12. XIPAMIDE [Concomitant]
     Indication: RENAL FAILURE CHRONIC
     Dosage: 20 MG, QD
     Route: 048
     Dates: start: 20070101

REACTIONS (8)
  - BRONCHITIS [None]
  - CORONARY ARTERY BYPASS [None]
  - COUGH [None]
  - DYSPNOEA [None]
  - MUSCLE SPASTICITY [None]
  - PURULENT DISCHARGE [None]
  - RENAL FAILURE CHRONIC [None]
  - UPPER RESPIRATORY TRACT INFECTION [None]
